FAERS Safety Report 5637227-7 (Version None)
Quarter: 2008Q1

REPORT INFORMATION
  Report Type: 
  Country: None (occurrence: None)
  Receive Date: 20080225
  Receipt Date: 20070108
  Transmission Date: 20080703
  Serious: No
  Sender: FDA-Public Use
  Company Number: US-BRISTOL-MYERS SQUIBB COMPANY-13635180

PATIENT
  Age: 42 Year
  Sex: Female
  Weight: 58 kg

DRUGS (2)
  1. KENALOG [Suspect]
     Indication: SINUSITIS
     Dates: start: 20061011, end: 20061011
  2. SYNTHROID [Concomitant]

REACTIONS (3)
  - INJECTION SITE ATROPHY [None]
  - MENORRHAGIA [None]
  - MUSCLE SPASMS [None]
